FAERS Safety Report 7741196-3 (Version None)
Quarter: 2011Q3

REPORT INFORMATION
  Report Type: 
  Country: None (occurrence: None)
  Receive Date: 20110909
  Receipt Date: 20110830
  Transmission Date: 20111222
  Serious: Yes (Death)
  Sender: FDA-Public Use
  Company Number: AR-GENZYME-THYM-1002605

PATIENT
  Sex: Female
  Weight: 19 kg

DRUGS (3)
  1. CORTICOSTEROID NOS [Concomitant]
     Indication: APLASTIC ANAEMIA
     Dosage: 20 MG/KG, UNK
     Dates: start: 20100927
  2. THYMOGLOBULIN [Suspect]
     Indication: APLASTIC ANAEMIA
     Dosage: 3.5 MG/KG, UNK
     Dates: start: 20100927
  3. CYCLOSPORINE [Concomitant]
     Indication: APLASTIC ANAEMIA
     Dosage: 5 MG/KG, UNK
     Dates: start: 20100927

REACTIONS (1)
  - HEPATIC CANDIDIASIS [None]
